FAERS Safety Report 9809862 (Version 2)
Quarter: 2015Q1

REPORT INFORMATION
  Report Type: Spontaneous
  Country: US (occurrence: US)
  Receive Date: 20140110
  Receipt Date: 20150217
  Transmission Date: 20150721
  Serious: Yes (Disabling, Other)
  Sender: FDA-Public Use
  Company Number: US-SANOFI-AVENTIS-2013SA067939

PATIENT
  Age: 69 Year

DRUGS (3)
  1. PLAVIX [Suspect]
     Active Substance: CLOPIDOGREL BISULFATE
     Indication: CEREBROVASCULAR ACCIDENT
     Route: 065
     Dates: start: 20081201, end: 20111001
  2. ASPIRIN. [Concomitant]
     Active Substance: ASPIRIN
  3. PLAVIX [Suspect]
     Active Substance: CLOPIDOGREL BISULFATE
     Indication: TRANSIENT ISCHAEMIC ATTACK
     Route: 065
     Dates: start: 20081201, end: 20111001

REACTIONS (5)
  - Hernia [Unknown]
  - Ulcer haemorrhage [Unknown]
  - Mouth haemorrhage [Unknown]
  - Rectal haemorrhage [Unknown]
  - Ulcer [Unknown]

NARRATIVE: CASE EVENT DATE: 201110
